FAERS Safety Report 5040570-6 (Version None)
Quarter: 2006Q2

REPORT INFORMATION
  Report Type: 
  Country: None (occurrence: None)
  Receive Date: 20060630
  Receipt Date: 20060621
  Transmission Date: 20061013
  Serious: Yes (Hospitalization)
  Sender: FDA-Public Use
  Company Number: US-ROCHE-452833

PATIENT
  Age: 67 Year
  Sex: Male

DRUGS (14)
  1. BONIVA [Suspect]
     Dosage: DOSING REGIMEN 150 MG, ONE DOSE GIVEN
     Route: 048
     Dates: start: 20060618, end: 20060620
  2. NEXAVAR [Concomitant]
     Indication: CHEMOTHERAPY
     Route: 048
  3. BUSPAR [Concomitant]
     Route: 048
  4. DETROL [Concomitant]
     Dosage: DOSING REGIMEN 4 MG HS
     Route: 048
  5. PROTONIX [Concomitant]
     Route: 048
  6. FLOMAX [Concomitant]
     Route: 048
  7. PROSCAR [Concomitant]
     Dosage: DOSING REGIMEN 5 MG HS
     Route: 048
  8. UNCLASSIFIED DRUG [Concomitant]
     Dosage: DRUG REPORTED AS ^PROMATINE^
     Route: 048
  9. DILANTIN [Concomitant]
     Route: 048
  10. KEPPRA [Concomitant]
     Dosage: DRUG REPORTED AS ^KEPRA^
     Route: 048
  11. COLACE [Concomitant]
     Route: 048
  12. SPIRIVA [Concomitant]
     Indication: UNEVALUABLE EVENT
     Route: 048
  13. UNCLASSIFIED DRUG [Concomitant]
     Indication: UNEVALUABLE EVENT
     Dosage: DRUG REPORTED AS ^XOPENAX^.
     Route: 048
  14. PREDNISONE [Concomitant]

REACTIONS (3)
  - FLATULENCE [None]
  - INTESTINAL OBSTRUCTION [None]
  - PYREXIA [None]
